FAERS Safety Report 9844331 (Version 2)
Quarter: 2014Q1

REPORT INFORMATION
  Report Type: Report from Study
  Country: CA (occurrence: CA)
  Receive Date: 20140127
  Receipt Date: 20140127
  Transmission Date: 20141002
  Serious: Yes (Other)
  Sender: FDA-Public Use
  Company Number: CA-BRISTOL-MYERS SQUIBB COMPANY-19853399

PATIENT
  Age: 72 Year
  Sex: Male

DRUGS (8)
  1. ORENCIA [Suspect]
     Indication: RHEUMATOID ARTHRITIS
     Dosage: 1DF=750 UNIT NOS?B.NO.:3H65680, EXP.DATE:JUL-2016.
     Dates: start: 20110602
  2. MOBICOX [Concomitant]
  3. ASAPHEN [Concomitant]
  4. MICARDIS [Concomitant]
  5. METOPROLOL [Concomitant]
  6. PRAVASTATIN SODIUM [Concomitant]
  7. VITAMIN D [Concomitant]
  8. ACETAMINOPHEN [Concomitant]

REACTIONS (2)
  - Choking [Unknown]
  - Dysphagia [Unknown]
